FAERS Safety Report 13769277 (Version 15)
Quarter: 2020Q3

REPORT INFORMATION
  Report Type: Report from Study
  Country: US (occurrence: US)
  Receive Date: 20170719
  Receipt Date: 20200818
  Transmission Date: 20201102
  Serious: Yes (Hospitalization, Other)
  Sender: FDA-Public Use
  Company Number: US-ACTELION-A-US2016-140274

PATIENT
  Age: 65 Year
  Sex: Female

DRUGS (15)
  1. FUROSEMIDE. [Concomitant]
     Active Substance: FUROSEMIDE
     Dosage: 40 MG, UNK
  2. MAGNESIUM OXIDE. [Concomitant]
     Active Substance: MAGNESIUM OXIDE
  3. NADOLOL. [Concomitant]
     Active Substance: NADOLOL
     Dosage: 40 MG, UNK
  4. GABAPENTIN. [Concomitant]
     Active Substance: GABAPENTIN
     Dosage: 300 MG, UNK
  5. OPSUMIT [Suspect]
     Active Substance: MACITENTAN
     Indication: PULMONARY ARTERIAL HYPERTENSION
     Dosage: 10 MG, QD
     Route: 048
     Dates: start: 20151204
  6. OPSUMIT [Suspect]
     Active Substance: MACITENTAN
     Dosage: 10 MG, QD
     Route: 048
     Dates: start: 20171027
  7. ENOXAPARIN [Concomitant]
     Active Substance: ENOXAPARIN
  8. ALPRAZOLAM. [Concomitant]
     Active Substance: ALPRAZOLAM
     Dosage: 0.25 MG, UNK
  9. OMEPRAZOLE. [Concomitant]
     Active Substance: OMEPRAZOLE
     Dosage: 20 MG, UNK
  10. POTASSIUM CHLORIDE. [Concomitant]
     Active Substance: POTASSIUM CHLORIDE
     Dosage: 10 MEQ, UNK
  11. METOLAZONE. [Concomitant]
     Active Substance: METOLAZONE
     Dosage: UNK, PRN
  12. SPIRONOLACTONE. [Concomitant]
     Active Substance: SPIRONOLACTONE
     Dosage: 50 MG, UNK
  13. FERROUS SULFATE. [Concomitant]
     Active Substance: FERROUS SULFATE
  14. SILDENAFIL. [Concomitant]
     Active Substance: SILDENAFIL
     Dosage: 20 MG, UNK
  15. HYDROCODONE BITARTRATE AND ACETAMINOPHEN [Concomitant]
     Active Substance: ACETAMINOPHEN\HYDROCODONE BITARTRATE
     Dosage: 5/325

REACTIONS (23)
  - Bacteraemia [Recovered/Resolved]
  - Musculoskeletal pain [Recovered/Resolved]
  - Blood bilirubin increased [Unknown]
  - Palpitations [Unknown]
  - Fall [Unknown]
  - Abdominal distension [Unknown]
  - Abscess [Recovered/Resolved]
  - Fluid retention [Not Recovered/Not Resolved]
  - Weight increased [Not Recovered/Not Resolved]
  - Chest discomfort [Unknown]
  - Choking sensation [Unknown]
  - Anxiety [Unknown]
  - Staphylococcal sepsis [Recovered/Resolved]
  - Dyspnoea [Not Recovered/Not Resolved]
  - Hospitalisation [Unknown]
  - Memory impairment [Unknown]
  - Product dose omission issue [Unknown]
  - Dizziness [Unknown]
  - Arthralgia [Recovered/Resolved]
  - Nervousness [Unknown]
  - Bedridden [Recovered/Resolved]
  - Rotator cuff syndrome [Recovered/Resolved]
  - Unevaluable event [Unknown]

NARRATIVE: CASE EVENT DATE: 201607
